FAERS Safety Report 12255100 (Version 1)
Quarter: 2016Q2

REPORT INFORMATION
  Report Type: Report from Study
  Country: BR (occurrence: BR)
  Receive Date: 20160411
  Receipt Date: 20160411
  Transmission Date: 20160815
  Serious: Yes (Hospitalization, Other)
  Sender: FDA-Public Use
  Company Number: BR-BIOGEN-2014BI056778

PATIENT
  Age: 45 Year
  Sex: Female
  Weight: 56 kg

DRUGS (6)
  1. TYSABRI [Suspect]
     Active Substance: NATALIZUMAB
     Dosage: INFUSED OVER 1 HOUR
     Route: 042
     Dates: end: 201512
  2. CLONAZEPAM. [Concomitant]
     Active Substance: CLONAZEPAM
     Indication: DEPRESSION
     Route: 048
     Dates: start: 2004
  3. TYSABRI [Suspect]
     Active Substance: NATALIZUMAB
     Dosage: INFUSED OVER 1 HOUR
     Route: 042
     Dates: start: 20130814, end: 20150425
  4. QUETIAPINE. [Concomitant]
     Active Substance: QUETIAPINE
     Indication: DEPRESSION
     Route: 048
  5. TYSABRI [Suspect]
     Active Substance: NATALIZUMAB
     Dosage: INFUSED OVER 1 HOUR
     Route: 042
  6. TYSABRI [Suspect]
     Active Substance: NATALIZUMAB
     Indication: MULTIPLE SCLEROSIS
     Dosage: INFUSED OVER 1 HOUR
     Route: 042
     Dates: start: 2012

REACTIONS (34)
  - Amnesia [Not Recovered/Not Resolved]
  - Systemic sclerosis [Not Recovered/Not Resolved]
  - Pallor [Recovered/Resolved]
  - Nausea [Not Recovered/Not Resolved]
  - Feeling of despair [Unknown]
  - Decreased interest [Unknown]
  - Renal disorder [Unknown]
  - Paraesthesia [Not Recovered/Not Resolved]
  - Vertigo [Not Recovered/Not Resolved]
  - Spinal osteoarthritis [Unknown]
  - Cough [Not Recovered/Not Resolved]
  - Insomnia [Not Recovered/Not Resolved]
  - Scleroderma [Recovered/Resolved with Sequelae]
  - Anhedonia [Unknown]
  - Coronary artery disease [Not Recovered/Not Resolved]
  - Rheumatoid arthritis [Not Recovered/Not Resolved]
  - Atrioventricular block [Recovered/Resolved]
  - Blood cholesterol increased [Not Recovered/Not Resolved]
  - Cerebral disorder [Not Recovered/Not Resolved]
  - Cognitive disorder [Not Recovered/Not Resolved]
  - Nosocomial infection [Recovered/Resolved]
  - Arrhythmia [Recovered/Resolved]
  - Urinary tract infection [Recovered/Resolved]
  - Haemangioma [Unknown]
  - Sinus polyp [Unknown]
  - Vitamin D decreased [Unknown]
  - Multiple sclerosis [Not Recovered/Not Resolved]
  - Depressed mood [Unknown]
  - Adverse event [Unknown]
  - Nephrolithiasis [Not Recovered/Not Resolved]
  - Emphysema [Not Recovered/Not Resolved]
  - Kidney infection [Not Recovered/Not Resolved]
  - Dysphonia [Not Recovered/Not Resolved]
  - Asthenia [Recovered/Resolved]

NARRATIVE: CASE EVENT DATE: 2014
